FAERS Safety Report 5421782-6 (Version None)
Quarter: 2007Q3

REPORT INFORMATION
  Report Type: 
  Country: None (occurrence: None)
  Receive Date: 20070820
  Receipt Date: 20070813
  Transmission Date: 20080115
  Serious: Yes (Other)
  Sender: FDA-Public Use
  Company Number: 39866

PATIENT
  Sex: Male

DRUGS (1)
  1. ACETYLCYSTEINE [Suspect]
     Indication: CYSTIC FIBROSIS
     Dosage: 1ML VIA NEBULIZER X4 TIMES A D
     Dates: start: 20070415

REACTIONS (1)
  - MEDICATION ERROR [None]
